FAERS Safety Report 12797876 (Version 1)
Quarter: 2016Q3

REPORT INFORMATION
  Report Type: Spontaneous
  Country: JP (occurrence: JP)
  Receive Date: 20160930
  Receipt Date: 20160930
  Transmission Date: 20161109
  Serious: Yes (Life-Threatening, Other)
  Sender: FDA-Public Use
  Company Number: JP-BRISTOL-MYERS SQUIBB COMPANY-BMS-2016-063759

PATIENT
  Age: 80 Year
  Sex: Female

DRUGS (12)
  1. HUMALOG [Suspect]
     Active Substance: INSULIN LISPRO
     Dosage: 9 IU, UNK
     Route: 058
     Dates: start: 20160704, end: 20160714
  2. HUMALOG [Suspect]
     Active Substance: INSULIN LISPRO
     Indication: DIABETES MELLITUS
     Dosage: 9 IU, UNK
     Route: 058
     Dates: start: 20160621, end: 20160623
  3. INSULIN GLARGINE [Suspect]
     Active Substance: INSULIN GLARGINE
     Indication: DIABETES MELLITUS
     Dosage: 5 IU, UNK
     Route: 058
     Dates: start: 20160621, end: 20160623
  4. INSULIN GLARGINE [Suspect]
     Active Substance: INSULIN GLARGINE
     Dosage: 7 IU, UNK
     Route: 058
     Dates: start: 20160623, end: 20160629
  5. SUREPOST [Suspect]
     Active Substance: REPAGLINIDE
     Dosage: 0.125 MG, TID
     Route: 048
     Dates: start: 20160728, end: 20160729
  6. HUMALOG [Suspect]
     Active Substance: INSULIN LISPRO
     Dosage: 15 IU, UNK
     Route: 058
     Dates: start: 20160623, end: 20160629
  7. INSULIN GLARGINE [Suspect]
     Active Substance: INSULIN GLARGINE
     Dosage: 3 IU, UNK
     Route: 058
     Dates: start: 20160629, end: 20160704
  8. HUMALOG [Suspect]
     Active Substance: INSULIN LISPRO
     Dosage: 21 IU, UNK
     Route: 058
     Dates: start: 20160714, end: 20160726
  9. METGLUCO [Suspect]
     Active Substance: METFORMIN HYDROCHLORIDE
     Indication: DIABETES MELLITUS
     Dosage: 250 MG, TID
     Route: 048
     Dates: start: 20160727
  10. METGLUCO [Suspect]
     Active Substance: METFORMIN HYDROCHLORIDE
     Dosage: 250 MG, BID
     Route: 048
     Dates: start: 20160728
  11. SUREPOST [Suspect]
     Active Substance: REPAGLINIDE
     Indication: DIABETES MELLITUS
     Dosage: 0.25 MG, UNK
     Route: 048
     Dates: start: 20160727, end: 20160728
  12. HUMALOG [Suspect]
     Active Substance: INSULIN LISPRO
     Dosage: 21 IU, UNK
     Route: 058
     Dates: start: 20160629, end: 20160704

REACTIONS (2)
  - Diarrhoea [Unknown]
  - Hypoglycaemia [Recovering/Resolving]

NARRATIVE: CASE EVENT DATE: 20160728
